FAERS Safety Report 9828790 (Version 16)
Quarter: 2015Q4

REPORT INFORMATION
  Report Type: Report from Study
  Country: CA (occurrence: CA)
  Receive Date: 20140118
  Receipt Date: 20151007
  Transmission Date: 20160305
  Serious: Yes (Other)
  Sender: FDA-Public Use
  Company Number: CA-ROCHE-1303041

PATIENT
  Age: 70 Year
  Sex: Male
  Weight: 81 kg

DRUGS (19)
  1. ACTEMRA [Suspect]
     Active Substance: TOCILIZUMAB
     Route: 042
     Dates: start: 20140623
  2. ACTEMRA [Suspect]
     Active Substance: TOCILIZUMAB
     Route: 042
     Dates: start: 20140819
  3. ACTEMRA [Suspect]
     Active Substance: TOCILIZUMAB
     Route: 042
     Dates: start: 20141117
  4. CRESTOR [Concomitant]
     Active Substance: ROSUVASTATIN CALCIUM
  5. ACTEMRA [Suspect]
     Active Substance: TOCILIZUMAB
     Route: 042
     Dates: start: 20150511
  6. METHOTREXATE [Suspect]
     Active Substance: METHOTREXATE
     Indication: RHEUMATOID ARTHRITIS
     Dosage: 5 OUT OF 7 DAYS
     Route: 065
  7. SULFASALAZINE. [Concomitant]
     Active Substance: SULFASALAZINE
  8. TYLENOL [Concomitant]
     Active Substance: ACETAMINOPHEN
  9. ACTEMRA [Suspect]
     Active Substance: TOCILIZUMAB
     Route: 042
     Dates: start: 20150413
  10. NEXIUM [Concomitant]
     Active Substance: ESOMEPRAZOLE MAGNESIUM
  11. TRIATEC (CODEINE PHOSPHATE/PARACETAMOL) [Concomitant]
  12. METHOTREXATE [Suspect]
     Active Substance: METHOTREXATE
     Route: 065
  13. PREDNISONE. [Concomitant]
     Active Substance: PREDNISONE
  14. VITAMIN B12 [Concomitant]
     Active Substance: CYANOCOBALAMIN
  15. ACETYLSALICYLIC ACID [Concomitant]
     Active Substance: ASPIRIN
  16. ACTEMRA [Suspect]
     Active Substance: TOCILIZUMAB
     Indication: RHEUMATOID ARTHRITIS
     Route: 042
     Dates: start: 20130913, end: 20150807
  17. ACTEMRA [Suspect]
     Active Substance: TOCILIZUMAB
     Route: 042
     Dates: start: 20141222
  18. PROZAC [Concomitant]
     Active Substance: FLUOXETINE HYDROCHLORIDE
  19. FOLIC ACID. [Concomitant]
     Active Substance: FOLIC ACID

REACTIONS (37)
  - Fungal infection [Recovered/Resolved]
  - Eye infection [Recovered/Resolved]
  - Blood pressure increased [Unknown]
  - Fungal infection [Not Recovered/Not Resolved]
  - Drug ineffective [Unknown]
  - Spinal osteoarthritis [Not Recovered/Not Resolved]
  - Hot flush [Not Recovered/Not Resolved]
  - Musculoskeletal pain [Recovered/Resolved]
  - Haematoma [Recovering/Resolving]
  - Nephrolithiasis [Unknown]
  - Hypertension [Unknown]
  - Oropharyngeal pain [Recovering/Resolving]
  - Rhinorrhoea [Recovered/Resolved]
  - Back pain [Recovered/Resolved]
  - Vomiting [Unknown]
  - Constipation [Not Recovered/Not Resolved]
  - Arthralgia [Not Recovered/Not Resolved]
  - Gastric ulcer [Unknown]
  - Nasal congestion [Recovered/Resolved]
  - Cough [Recovered/Resolved]
  - Tinnitus [Not Recovered/Not Resolved]
  - Infusion related reaction [Unknown]
  - Rheumatoid arthritis [Recovered/Resolved]
  - Nausea [Unknown]
  - Haemoptysis [Recovered/Resolved]
  - Abdominal pain upper [Recovered/Resolved]
  - Mouth ulceration [Not Recovered/Not Resolved]
  - Chest discomfort [Unknown]
  - Fatigue [Unknown]
  - Ulcer [Recovering/Resolving]
  - Platelet count decreased [Unknown]
  - Back pain [Not Recovered/Not Resolved]
  - Fatigue [Recovered/Resolved]
  - Diarrhoea [Unknown]
  - Blood pressure increased [Unknown]
  - Drug dose omission [Unknown]
  - Haemorrhoids [Not Recovered/Not Resolved]

NARRATIVE: CASE EVENT DATE: 2014
